FAERS Safety Report 10136295 (Version 1)
Quarter: 2014Q2

REPORT INFORMATION
  Report Type: Spontaneous
  Country: US (occurrence: None)
  Receive Date: 20140422
  Receipt Date: 20140422
  Transmission Date: 20141212
  Serious: Yes (Other)
  Sender: FDA-Public Use
  Company Number: 2

PATIENT
  Age: 69 Year
  Sex: Female

DRUGS (1)
  1. AVASTIN [Suspect]
     Indication: RETINAL VEIN OCCLUSION
     Route: 031
     Dates: start: 20120507

REACTIONS (3)
  - Vision blurred [None]
  - Iritis [None]
  - Drug ineffective [None]
